FAERS Safety Report 7640338-8 (Version None)
Quarter: 2011Q3

REPORT INFORMATION
  Report Type: 
  Country: None (occurrence: None)
  Receive Date: 20110728
  Receipt Date: 20070814
  Transmission Date: 20111222
  Serious: Yes (Death, Hospitalization, Other)
  Sender: FDA-Public Use
  Company Number: US-BAYER-200712759BWH

PATIENT
  Age: 77 Year
  Sex: Female
  Weight: 89.796 kg

DRUGS (23)
  1. TARKA [Concomitant]
     Dosage: 4/240 MG DAILY
     Route: 048
  2. ACETYLSALICYLIC ACID SRT [Concomitant]
     Dosage: UNK UNK, QD
     Route: 048
  3. IMDUR [Concomitant]
     Dosage: 60 MG, QD
     Route: 048
  4. TRASYLOL [Suspect]
     Indication: CORONARY ARTERY BYPASS
     Dosage: 200 ML, PUMP PRIME
     Route: 042
     Dates: start: 20040401, end: 20040401
  5. ACETAMINOPHEN [Concomitant]
     Dosage: 650 MG, TID
     Route: 048
  6. HEPARIN [Concomitant]
     Dosage: 8000 U, UNK
     Route: 042
     Dates: start: 20040401
  7. CARDIOPLEGIA [Concomitant]
     Dosage: UNK
     Route: 042
     Dates: start: 20040401
  8. NEXIUM [Concomitant]
     Dosage: 40 MG, QD
     Route: 048
  9. HYDROCHLOROTHIAZIDE [Concomitant]
     Dosage: 25 MG, QD
     Route: 048
  10. TOPROL-XL [Concomitant]
     Dosage: 100 MG, QD
     Route: 048
  11. HEPARIN [Concomitant]
     Dosage: 5000 U, UNK
     Route: 042
     Dates: start: 20040401
  12. PLASMALYTE [GLUCOSE,POTASSIUM CHLORIDE] [Concomitant]
     Dosage: 200 ML, UNK
     Route: 042
     Dates: start: 20040401
  13. TRASYLOL [Suspect]
     Dosage: 50 ML/HOUR
     Route: 042
     Dates: start: 20040401, end: 20040401
  14. TRASYLOL [Suspect]
     Dosage: 200 ML LOADING DOSE
     Dates: start: 20040401, end: 20040401
  15. BENICAR [Concomitant]
     Dosage: 40 MG, QD
     Route: 048
  16. HEPARIN [Concomitant]
     Dosage: 18000 U, UNK
     Route: 042
     Dates: start: 20040401
  17. HEPARIN [Concomitant]
     Dosage: 3000 U
     Route: 042
     Dates: start: 20040401
  18. LIDOCAINE [Concomitant]
     Dosage: 100 MG, UNK
     Route: 042
     Dates: start: 20040401
  19. PROPOFOL [Concomitant]
     Dosage: UNK
     Route: 042
     Dates: start: 20040401
  20. PREMARIN [Concomitant]
     Dosage: 0.625 MG, QD
     Route: 048
  21. FENTANYL [Concomitant]
     Dosage: UNK
     Route: 042
     Dates: start: 20040401
  22. NITROGLYCERIN [Concomitant]
     Route: 060
  23. CONTRAST MEDIA [Concomitant]
     Indication: CATHETERISATION CARDIAC
     Dosage: UNK
     Dates: start: 20040315

REACTIONS (10)
  - DEATH [None]
  - ANXIETY [None]
  - ANHEDONIA [None]
  - FEAR [None]
  - UNEVALUABLE EVENT [None]
  - INJURY [None]
  - RENAL FAILURE [None]
  - PAIN [None]
  - EMOTIONAL DISTRESS [None]
  - DEPRESSION [None]
